FAERS Safety Report 14594601 (Version 1)
Quarter: 2018Q1

REPORT INFORMATION
  Report Type: Spontaneous
  Country: US (occurrence: US)
  Receive Date: 20180302
  Receipt Date: 20180302
  Transmission Date: 20180509
  Serious: No
  Sender: FDA-Public Use
  Company Number: US-PERRIGO-17US030888

PATIENT
  Age: 69 Year
  Sex: Female
  Weight: 68.27 kg

DRUGS (1)
  1. IBUPROFEN. [Suspect]
     Active Substance: IBUPROFEN
     Indication: ARTHRALGIA
     Dosage: 200 MG, QID, PRN
     Route: 048

REACTIONS (1)
  - Drug administered to patient of inappropriate age [Not Recovered/Not Resolved]
